FAERS Safety Report 5377807-X (Version None)
Quarter: 2007Q3

REPORT INFORMATION
  Report Type: 
  Country: None (occurrence: None)
  Receive Date: 20070703
  Receipt Date: 20070622
  Transmission Date: 20080115
  Serious: Yes (Other)
  Sender: FDA-Public Use
  Company Number: US-PFIZER INC-2007052242

PATIENT
  Sex: Male
  Weight: 137.72 kg

DRUGS (17)
  1. NEURONTIN [Suspect]
     Indication: DIABETIC NEUROPATHY
     Route: 048
  2. LYRICA [Suspect]
     Indication: DIABETIC NEUROPATHY
  3. CYMBALTA [Concomitant]
     Route: 048
  4. ACETAMINOPHEN AND OXYCODONE HCL [Concomitant]
     Route: 048
  5. ACETAMINOPHEN AND HYDROCODONE BITARTRATE [Concomitant]
     Route: 048
  6. BENZONATATE [Concomitant]
     Indication: PNEUMONIA
     Route: 048
  7. VYTORIN [Concomitant]
     Dosage: TEXT:10/80 MG
     Route: 048
  8. AMBIEN [Concomitant]
     Dosage: DAILY DOSE:12.5MG
     Route: 048
  9. SONATA [Concomitant]
     Route: 048
  10. ACTOS [Concomitant]
     Route: 048
  11. ASPIRIN [Concomitant]
     Route: 048
  12. TRAMADOL HCL [Concomitant]
     Route: 048
  13. NEXIUM [Concomitant]
     Route: 048
  14. FUROSEMIDE [Concomitant]
     Route: 048
  15. MULTIVITAMIN [Concomitant]
     Route: 048
  16. PROMETHAZINE [Concomitant]
     Route: 048
  17. DRUG, UNSPECIFIED [Concomitant]
     Indication: DIABETES MELLITUS

REACTIONS (5)
  - BODY HEIGHT DECREASED [None]
  - DIZZINESS [None]
  - FALL [None]
  - PAIN [None]
  - PNEUMONIA [None]
